FAERS Safety Report 17721507 (Version 1)
Quarter: 2020Q2

REPORT INFORMATION
  Report Type: Spontaneous
  Country: IT (occurrence: IT)
  Receive Date: 20200429
  Receipt Date: 20200429
  Transmission Date: 20200714
  Serious: Yes (Hospitalization)
  Sender: FDA-Public Use
  Company Number: IT-SUN PHARMACEUTICAL INDUSTRIES LTD-2020RR-245327

PATIENT
  Age: 56 Year
  Sex: Female
  Weight: 65 kg

DRUGS (1)
  1. OXALIPLATINO SUN [Suspect]
     Active Substance: OXALIPLATIN
     Indication: PANCREATIC CARCINOMA METASTATIC
     Dosage: CYCLICAL
     Route: 042
     Dates: start: 20200114, end: 20200114

REACTIONS (1)
  - Paraesthesia oral [Recovered/Resolved with Sequelae]

NARRATIVE: CASE EVENT DATE: 20200114
